FAERS Safety Report 4522747-9 (Version None)
Quarter: 2004Q4

REPORT INFORMATION
  Report Type: 
  Country: None (occurrence: None)
  Receive Date: 20041207
  Receipt Date: 20041201
  Transmission Date: 20050328
  Serious: Yes (Life-Threatening, Hospitalization, Disabling)
  Sender: FDA-Public Use
  Company Number: 2004-122901-NL

PATIENT
  Age: 30 Year
  Sex: Female

DRUGS (5)
  1. MIRTAZAPINE [Suspect]
     Indication: DEPRESSION
     Dosage: 45 MG QD ORAL
     Route: 048
     Dates: start: 20041104, end: 20041125
  2. FLUTICASONE PROPIONATE [Concomitant]
  3. ETHINYL ESTRADIOL TAB [Concomitant]
  4. BUDESONIDE [Concomitant]
  5. FLUCONAZOLE [Concomitant]

REACTIONS (4)
  - BRAIN HYPOXIA [None]
  - CARDIAC ARREST [None]
  - CARDIOMYOPATHY [None]
  - VENTRICULAR FIBRILLATION [None]
